FAERS Safety Report 4738831-0 (Version None)
Quarter: 2005Q3

REPORT INFORMATION
  Report Type: 
  Country: None (occurrence: None)
  Receive Date: 20050809
  Receipt Date: 20050805
  Transmission Date: 20060218
  Serious: Yes (Life-Threatening)
  Sender: FDA-Public Use
  Company Number: GB-MERCK-0508GBR00049

PATIENT
  Age: 69 Year
  Sex: Female
  Weight: 72 kg

DRUGS (6)
  1. FOSAMAX [Suspect]
     Indication: OSTEOPOROSIS
     Route: 048
     Dates: start: 20050703, end: 20050704
  2. TRAMADOL HYDROCHLORIDE [Concomitant]
     Indication: ARTHRITIS
     Route: 065
     Dates: start: 20020411
  3. BENDROFLUMETHIAZIDE [Concomitant]
     Indication: JOINT SWELLING
     Route: 048
     Dates: start: 20030922
  4. IBUPROFEN [Concomitant]
     Indication: SPINAL OSTEOARTHRITIS
     Route: 048
     Dates: start: 20050621
  5. ALBUTEROL [Concomitant]
     Indication: ASTHMA
     Route: 055
     Dates: start: 20030127
  6. AMINOPHYLLINE [Concomitant]
     Indication: ASTHMA
     Route: 048
     Dates: start: 20030317

REACTIONS (3)
  - DYSPHAGIA [None]
  - DYSPNOEA [None]
  - OESOPHAGEAL DISORDER [None]
